FAERS Safety Report 21637899 (Version 1)
Quarter: 2022Q4

REPORT INFORMATION
  Report Type: Spontaneous
  Country: US (occurrence: US)
  Receive Date: 20221124
  Receipt Date: 20221124
  Transmission Date: 20230112
  Serious: No
  Sender: FDA-Public Use
  Company Number: US-KERYX BIOPHARMACEUTICALS INC.-2022US009304

PATIENT
  Age: 73 Year
  Sex: Male

DRUGS (3)
  1. AURYXIA [Suspect]
     Active Substance: TETRAFERRIC TRICITRATE DECAHYDRATE
     Indication: Hyperphosphataemia
     Dosage: 6 GRAM  (TABLET), QD
     Route: 048
     Dates: start: 2019
  2. HECTOROL [Concomitant]
     Active Substance: DOXERCALCIFEROL
     Dosage: UNK
  3. ALLOPURINOL [Concomitant]
     Active Substance: ALLOPURINOL
     Dosage: UNK

REACTIONS (3)
  - Blood phosphorus abnormal [Unknown]
  - Serum ferritin increased [Unknown]
  - Intentional product misuse [Unknown]
